FAERS Safety Report 9255780 (Version 2)
Quarter: 2013Q2

REPORT INFORMATION
  Report Type: Spontaneous
  Country: US (occurrence: US)
  Receive Date: 20130425
  Receipt Date: 20130621
  Transmission Date: 20140414
  Serious: Yes (Hospitalization)
  Sender: FDA-Public Use
  Company Number: US-VERTEX PHARMACEUTICALS INC.-2013-005363

PATIENT
  Age: 8 Year
  Sex: Female

DRUGS (6)
  1. KALYDECO [Suspect]
     Indication: CYSTIC FIBROSIS
     Dosage: 150 MG, BID
     Dates: start: 20130321, end: 20130422
  2. ZOSYN [Suspect]
     Indication: BACTERIAL DISEASE CARRIER
     Dosage: 100 MG/KG, QID
     Route: 042
     Dates: end: 20130416
  3. AZITHROMYCIN [Concomitant]
     Indication: CYSTIC FIBROSIS
     Dosage: 250 MG, MWF
     Route: 048
  4. ANTIBIOTICS [Concomitant]
     Indication: CYSTIC FIBROSIS
     Route: 055
  5. PULMOZYME [Concomitant]
     Dosage: 2.5 MG, QD
     Route: 055
  6. SALINE [Concomitant]
     Dosage: 4 ML, BID
     Route: 055

REACTIONS (3)
  - Alanine aminotransferase increased [Recovered/Resolved]
  - Aspartate aminotransferase increased [Recovered/Resolved]
  - Off label use [Recovered/Resolved]
